FAERS Safety Report 19735062 (Version 1)
Quarter: 2021Q3

REPORT INFORMATION
  Report Type: Report from Study
  Country: None (occurrence: SE)
  Receive Date: 20210824
  Receipt Date: 20210824
  Transmission Date: 20211014
  Serious: Yes (Other)
  Sender: FDA-Public Use
  Company Number: SE-ABBVIE-21K-150-4048395-00

PATIENT
  Sex: Male

DRUGS (2)
  1. DUODOPA [Suspect]
     Active Substance: CARBIDOPA\LEVODOPA
  2. DUODOPA [Suspect]
     Active Substance: CARBIDOPA\LEVODOPA
     Indication: PARKINSON^S DISEASE
     Dosage: THERAPY DURATION: REMAINS AT 24H.
     Route: 050
     Dates: start: 20170605

REACTIONS (6)
  - Pain [Unknown]
  - Muscle fatigue [Unknown]
  - Spinal stenosis [Recovering/Resolving]
  - COVID-19 [Recovered/Resolved]
  - Device dislocation [Unknown]
  - Walking aid user [Unknown]

NARRATIVE: CASE EVENT DATE: 2021
